FAERS Safety Report 11409320 (Version 1)
Quarter: 2015Q3

REPORT INFORMATION
  Report Type: Spontaneous
  Country: US (occurrence: None)
  Receive Date: 20150820
  Receipt Date: 20150820
  Transmission Date: 20151125
  Serious: Yes (Hospitalization)
  Sender: FDA-Public Use
  Company Number: 2015HINLIT0683

PATIENT
  Age: 66 Year
  Sex: Male

DRUGS (7)
  1. SEVELAMER [Concomitant]
     Active Substance: SEVELAMER
  2. FUROSEMIDE. [Concomitant]
     Active Substance: FUROSEMIDE
  3. SIMVASTATIN. [Concomitant]
     Active Substance: SIMVASTATIN
  4. VALACYCLOVIR [Suspect]
     Active Substance: VALACYCLOVIR HYDROCHLORIDE
     Indication: OPHTHALMIC HERPES ZOSTER
     Route: 048
  5. GLIMEPIRIDE. [Concomitant]
     Active Substance: GLIMEPIRIDE
  6. TRIFLURIDINE. [Concomitant]
     Active Substance: TRIFLURIDINE
  7. METOPROLOL [Concomitant]
     Active Substance: METOPROLOL

REACTIONS (6)
  - Body temperature increased [None]
  - Hallucination [None]
  - Neurotoxicity [None]
  - Depression [None]
  - Insomnia [None]
  - Photosensitivity reaction [None]
